FAERS Safety Report 14023734 (Version 1)
Quarter: 2017Q3

REPORT INFORMATION
  Report Type: Spontaneous
  Country: US (occurrence: US)
  Receive Date: 20170928
  Receipt Date: 20170928
  Transmission Date: 20171128
  Serious: No
  Sender: FDA-Public Use
  Company Number: US-SA-2017SA031590

PATIENT
  Sex: Male

DRUGS (1)
  1. AUBAGIO [Suspect]
     Active Substance: TERIFLUNOMIDE
     Indication: MULTIPLE SCLEROSIS
     Route: 048
     Dates: start: 201701

REACTIONS (7)
  - Decreased interest [Unknown]
  - Hypoaesthesia [Unknown]
  - Muscular weakness [Unknown]
  - Decreased appetite [Unknown]
  - Depression [Unknown]
  - Balance disorder [Unknown]
  - Fall [Unknown]
